FAERS Safety Report 7304319-6 (Version None)
Quarter: 2011Q1

REPORT INFORMATION
  Report Type: 
  Country: None (occurrence: None)
  Receive Date: 20110221
  Receipt Date: 20110208
  Transmission Date: 20110831
  Serious: Yes (Hospitalization)
  Sender: FDA-Public Use
  Company Number: US-BAYER-201014341NA

PATIENT
  Sex: Female
  Weight: 77 kg

DRUGS (6)
  1. ST. JOHN'S WORT [Concomitant]
     Dosage: OCCASIONALLY
     Route: 065
  2. FISH OIL [Concomitant]
     Route: 065
  3. YAZ [Suspect]
     Indication: PREMENSTRUAL SYNDROME
  4. UNCODEABLE ^UNCLASSIFIABLE^ [Concomitant]
     Route: 065
     Dates: start: 20090109, end: 20090114
  5. YAZ [Suspect]
     Indication: CONTRACEPTION
     Dosage: OTHER INDICATION: HEAVY MENSES
     Route: 048
     Dates: start: 20080501, end: 20090114
  6. YAZ [Suspect]
     Indication: ACNE

REACTIONS (7)
  - PULMONARY INFARCTION [None]
  - PULMONARY EMBOLISM [None]
  - CHEST PAIN [None]
  - PAINFUL RESPIRATION [None]
  - PLEURITIC PAIN [None]
  - PLEURISY [None]
  - MENTAL DISORDER [None]
